FAERS Safety Report 20542289 (Version 1)
Quarter: 2022Q1

REPORT INFORMATION
  Report Type: Spontaneous
  Country: AU (occurrence: AU)
  Receive Date: 20220302
  Receipt Date: 20220302
  Transmission Date: 20220423
  Serious: No
  Sender: FDA-Public Use
  Company Number: AU-LUPIN PHARMACEUTICALS INC.-2022-02294

PATIENT
  Age: 65 Year
  Sex: Male
  Weight: 88 kg

DRUGS (14)
  1. BETAMETHASONE DIPROPIONATE [Suspect]
     Active Substance: BETAMETHASONE DIPROPIONATE
     Indication: Pityriasis rubra pilaris
     Dosage: UNK
     Route: 061
  2. PARAFFIN [Suspect]
     Active Substance: PARAFFIN
     Indication: Pityriasis rubra pilaris
     Dosage: UNK
     Route: 061
  3. GLYCERIN [Suspect]
     Active Substance: GLYCERIN
     Indication: Pityriasis rubra pilaris
     Dosage: UNK
     Route: 061
  4. MINERAL OIL [Suspect]
     Active Substance: MINERAL OIL
     Indication: Pityriasis rubra pilaris
     Dosage: UNK IN SORBOLENE CREAM
     Route: 061
  5. ACITRETIN [Suspect]
     Active Substance: ACITRETIN
     Indication: Pityriasis rubra pilaris
     Dosage: 25 MG, QD
     Route: 065
     Dates: start: 2018, end: 2018
  6. ACITRETIN [Suspect]
     Active Substance: ACITRETIN
     Dosage: 35 MG, QD
     Route: 065
     Dates: start: 2018, end: 2018
  7. ACITRETIN [Suspect]
     Active Substance: ACITRETIN
     Dosage: 10 MG, QD WITH SECUKINUMAB
     Route: 065
     Dates: start: 2018, end: 2019
  8. METHOTREXATE [Suspect]
     Active Substance: METHOTREXATE
     Indication: Pityriasis rubra pilaris
     Dosage: 10 MG PER WEEK
     Route: 065
     Dates: start: 2018, end: 2018
  9. METHOTREXATE [Suspect]
     Active Substance: METHOTREXATE
     Dosage: 20 MG PER WEEK
     Route: 065
     Dates: start: 2018, end: 2018
  10. METHOTREXATE [Suspect]
     Active Substance: METHOTREXATE
     Dosage: 10 MG PER WEEK WITH SECUKINUMAB
     Route: 065
     Dates: start: 2018, end: 2019
  11. METHOTREXATE [Suspect]
     Active Substance: METHOTREXATE
     Dosage: 20 MG PER WEEK WITH TILDRAKIZUMAB
     Route: 065
     Dates: start: 2019, end: 2019
  12. CYCLOSPORINE [Suspect]
     Active Substance: CYCLOSPORINE
     Indication: Pityriasis rubra pilaris
     Dosage: 100 MG, BID
     Route: 065
     Dates: start: 2018, end: 2018
  13. SECUKINUMAB [Suspect]
     Active Substance: SECUKINUMAB
     Indication: Pityriasis rubra pilaris
     Dosage: 300 MG PER MONTH
     Route: 065
     Dates: start: 2018, end: 2019
  14. TILDRAKIZUMAB [Suspect]
     Active Substance: TILDRAKIZUMAB
     Indication: Pityriasis rubra pilaris
     Dosage: 200 MG PER WEEK
     Route: 065
     Dates: start: 2019, end: 2019

REACTIONS (1)
  - Off label use [Unknown]
